FAERS Safety Report 15814124 (Version 1)
Quarter: 2019Q1

REPORT INFORMATION
  Report Type: Report from Study
  Country: CO (occurrence: CO)
  Receive Date: 20190111
  Receipt Date: 20190111
  Transmission Date: 20190417
  Serious: Yes (Hospitalization)
  Sender: FDA-Public Use
  Company Number: PHHY2019CO003652

PATIENT
  Sex: Male
  Weight: 90 kg

DRUGS (2)
  1. JARDIANCE [Concomitant]
     Active Substance: EMPAGLIFLOZIN
     Indication: PRODUCT USED FOR UNKNOWN INDICATION
     Dosage: UNK
     Route: 065
  2. ENTRESTO [Suspect]
     Active Substance: SACUBITRIL\VALSARTAN
     Indication: CARDIAC FAILURE
     Dosage: 0.5 DF (100 MG, 1/2 IN THE MORNING, 1/2 AT NIGHT), BID
     Route: 048
     Dates: start: 20181026

REACTIONS (5)
  - Chest pain [Unknown]
  - Wrong technique in product usage process [Unknown]
  - Renal impairment [Unknown]
  - Blood creatinine increased [Unknown]
  - Blood pressure decreased [Unknown]
